FAERS Safety Report 23820470 (Version 2)
Quarter: 2024Q2

REPORT INFORMATION
  Report Type: Report from Study
  Country: CO (occurrence: CO)
  Receive Date: 20240506
  Receipt Date: 20240524
  Transmission Date: 20240715
  Serious: Yes (Hospitalization, Other)
  Sender: FDA-Public Use
  Company Number: CO-IPSEN Group, Research and Development-2024-04116

PATIENT
  Sex: Male
  Weight: 76 kg

DRUGS (10)
  1. CABOMETYX [Suspect]
     Active Substance: CABOZANTINIB S-MALATE
     Indication: Renal cell carcinoma
     Dosage: 60 MG, QD
     Route: 048
     Dates: start: 20230901
  2. CABOMETYX [Suspect]
     Active Substance: CABOZANTINIB S-MALATE
     Dosage: 60 MG
     Route: 048
     Dates: start: 20230801
  3. LEVOTHYROXINE [Concomitant]
     Active Substance: LEVOTHYROXINE\LEVOTHYROXINE SODIUM
     Indication: Thyroid disorder
     Dosage: 100 MG, QD
     Dates: start: 2021
  4. LEVOTHYROXINE [Concomitant]
     Active Substance: LEVOTHYROXINE\LEVOTHYROXINE SODIUM
     Dosage: 100 MG
     Dates: start: 2023
  5. IRBESARTAN [Concomitant]
     Active Substance: IRBESARTAN
     Indication: Hypertension
     Dosage: 150 MG, QD
     Dates: start: 2023
  6. IRBESARTAN [Concomitant]
     Active Substance: IRBESARTAN
  7. CARVEDILOL [Concomitant]
     Active Substance: CARVEDILOL
     Indication: Hypertension
     Dosage: 3.5 MG, QD
     Dates: start: 2018
  8. FUROSEMIDE [Concomitant]
     Active Substance: FUROSEMIDE
     Indication: Urinary retention
     Dosage: 40 MG, QD
     Dates: start: 202210
  9. AXITINIB [Concomitant]
     Active Substance: AXITINIB
     Indication: Renal cell carcinoma
     Dosage: UNK
     Route: 048
  10. AXITINIB [Concomitant]
     Active Substance: AXITINIB

REACTIONS (11)
  - Diabetes mellitus [Not Recovered/Not Resolved]
  - Skin lesion [Not Recovered/Not Resolved]
  - Testicular disorder [Not Recovered/Not Resolved]
  - Gastritis [Not Recovered/Not Resolved]
  - Anorectal discomfort [Not Recovered/Not Resolved]
  - Skin irritation [Not Recovered/Not Resolved]
  - Vomiting [Not Recovered/Not Resolved]
  - Diarrhoea [Not Recovered/Not Resolved]
  - Ill-defined disorder [Unknown]
  - Product supply issue [Unknown]
  - Product dose omission issue [Unknown]

NARRATIVE: CASE EVENT DATE: 20240201
